FAERS Safety Report 6883405-9 (Version None)
Quarter: 2010Q3

REPORT INFORMATION
  Report Type: 
  Country: None (occurrence: None)
  Receive Date: 20100729
  Receipt Date: 20100720
  Transmission Date: 20110219
  Serious: Yes (Other)
  Sender: FDA-Public Use
  Company Number: US-PFIZER INC-2010090837

PATIENT
  Sex: Female
  Weight: 77.098 kg

DRUGS (7)
  1. LIPITOR [Suspect]
     Indication: BLOOD CHOLESTEROL INCREASED
     Dosage: 10 MG, 1X/DAY
     Route: 048
     Dates: start: 20020101
  2. LIPITOR [Suspect]
     Dosage: 20 MG, 1X/DAY
     Dates: start: 20100718
  3. VALSARTAN [Concomitant]
     Indication: HYPERTENSION
     Dosage: 80 MG, 1X/DAY
     Route: 048
  4. NADOLOL [Concomitant]
     Indication: HYPERTENSION
     Dosage: 80 MG, 1X/DAY
     Route: 048
  5. SEROQUEL [Concomitant]
     Indication: DEPRESSION
     Dosage: 300 MG, 1X/DAY
     Route: 048
  6. SEROQUEL [Concomitant]
     Indication: BIPOLAR DISORDER
  7. CLONAZEPAM [Concomitant]
     Indication: ANXIETY
     Dosage: 0.5 MG, AS NEEDED
     Route: 048

REACTIONS (3)
  - ARTHRITIS [None]
  - INTERVERTEBRAL DISC PROTRUSION [None]
  - MAMMARY DUCT ECTASIA [None]
